FAERS Safety Report 9644019 (Version 1)
Quarter: 2013Q4

REPORT INFORMATION
  Report Type: Report from Study
  Country: US (occurrence: US)
  Receive Date: 20131024
  Receipt Date: 20131024
  Transmission Date: 20140711
  Serious: Yes (Hospitalization)
  Sender: FDA-Public Use
  Company Number: US-ABBVIE-13P-163-1157842-00

PATIENT
  Age: 49 Year
  Sex: Female

DRUGS (2)
  1. HUMIRA [Suspect]
     Indication: ANKYLOSING SPONDYLITIS
     Dates: start: 201211, end: 201306
  2. LEXAPRO [Concomitant]
     Indication: PRODUCT USED FOR UNKNOWN INDICATION

REACTIONS (10)
  - Bone loss [Not Recovered/Not Resolved]
  - Craniocerebral injury [Recovered/Resolved with Sequelae]
  - Road traffic accident [Recovered/Resolved]
  - Tibia fracture [Recovering/Resolving]
  - Thoracic vertebral fracture [Recovering/Resolving]
  - Dry eye [Recovered/Resolved]
  - Abdominal distension [Recovered/Resolved]
  - Therapeutic response unexpected [Unknown]
  - Cognitive disorder [Unknown]
  - Procedural pain [Unknown]
